FAERS Safety Report 6490862-9 (Version None)
Quarter: 2009Q4

REPORT INFORMATION
  Report Type: 
  Country: None (occurrence: None)
  Receive Date: 20091211
  Receipt Date: 20091201
  Transmission Date: 20100525
  Serious: Yes (Hospitalization, Other)
  Sender: FDA-Public Use
  Company Number: JP-PFIZER INC-2009290823

PATIENT
  Age: 59 Year
  Sex: Male
  Weight: 60 kg

DRUGS (16)
  1. PRODIF [Suspect]
     Indication: SYSTEMIC MYCOSIS
     Dosage: 1009 MG, 1X/DAY
     Route: 042
     Dates: start: 20091024, end: 20091024
  2. PRODIF [Suspect]
     Dosage: 504.5 MG, 1X/DAY
     Dates: start: 20091025, end: 20091027
  3. AZULFIDINE [Suspect]
     Indication: RHEUMATOID ARTHRITIS
     Route: 048
     Dates: start: 20060912, end: 20070827
  4. RHEUMATREX [Suspect]
     Indication: RHEUMATOID ARTHRITIS
     Dosage: 2 MG, 2X/DAY
     Route: 048
     Dates: start: 20091016, end: 20091016
  5. ASPIRIN [Concomitant]
     Dosage: UNK
     Route: 048
     Dates: start: 20070607
  6. ADALAT CC [Concomitant]
     Dosage: UNK
     Route: 048
     Dates: start: 20060515
  7. CARDENALIN [Concomitant]
     Dosage: UNK
     Route: 048
     Dates: start: 20011119
  8. LOSARTAN POTASSIUM AND HYDROCHLOROTHIAZIDE [Concomitant]
     Dosage: UNK
     Route: 048
     Dates: start: 20080710
  9. EPLERENONE [Concomitant]
     Dosage: UNK
     Route: 048
     Dates: start: 20081113
  10. DIART [Concomitant]
     Dosage: UNK
     Route: 048
     Dates: start: 20060530
  11. NATRIX [Concomitant]
     Dosage: UNK
     Route: 048
     Dates: start: 20090903, end: 20091109
  12. GRAN [Concomitant]
     Route: 058
     Dates: start: 20091022, end: 20091104
  13. MAXIPIME [Concomitant]
     Route: 042
     Dates: start: 20091022, end: 20091025
  14. VANCOMYCIN [Concomitant]
     Route: 042
     Dates: start: 20091024, end: 20091024
  15. BIAPENEM [Concomitant]
     Route: 042
     Dates: start: 20091026, end: 20091113
  16. SOLU-MEDROL [Concomitant]
     Route: 042
     Dates: start: 20091026, end: 20091028

REACTIONS (6)
  - ADRENOCORTICAL INSUFFICIENCY ACUTE [None]
  - AGRANULOCYTOSIS [None]
  - ANAEMIA [None]
  - HEPATIC FAILURE [None]
  - LIVER DISORDER [None]
  - THROMBOCYTOPENIA [None]
